FAERS Safety Report 8063178-7 (Version None)
Quarter: 2012Q1

REPORT INFORMATION
  Report Type: 
  Country: None (occurrence: None)
  Receive Date: 20120123
  Receipt Date: 20120116
  Transmission Date: 20120608
  Serious: Yes (Hospitalization)
  Sender: FDA-Public Use
  Company Number: PHHY2012PE003871

PATIENT
  Age: 14 Year
  Sex: Female

DRUGS (1)
  1. VOLTAREN [Suspect]
     Indication: PAIN IN EXTREMITY
     Dosage: 2 ML, UNK
     Dates: start: 20111105

REACTIONS (5)
  - PRURITUS [None]
  - ACUTE ABDOMEN [None]
  - ANAPHYLACTIC SHOCK [None]
  - DENGUE FEVER [None]
  - ERYTHEMA [None]
